FAERS Safety Report 6887853-2 (Version None)
Quarter: 2010Q3

REPORT INFORMATION
  Report Type: 
  Country: None (occurrence: None)
  Receive Date: 20100730
  Receipt Date: 20100726
  Transmission Date: 20110219
  Serious: Yes (Other)
  Sender: FDA-Public Use
  Company Number: US-CEPHALON-2010000481

PATIENT
  Sex: Female
  Weight: 75 kg

DRUGS (2)
  1. AMRIX [Suspect]
     Indication: MUSCLE SPASMS
     Route: 048
     Dates: start: 20091209, end: 20091214
  2. AMRIX [Suspect]
     Indication: JOINT SPRAIN

REACTIONS (2)
  - ERYTHEMA MULTIFORME [None]
  - SKIN INFECTION [None]
